FAERS Safety Report 4801759-1 (Version None)
Quarter: 2005Q4

REPORT INFORMATION
  Report Type: 
  Country: None (occurrence: None)
  Receive Date: 20051011
  Receipt Date: 20051005
  Transmission Date: 20060501
  Serious: Yes (Hospitalization)
  Sender: FDA-Public Use
  Company Number: HQWYE566521SEP05

PATIENT
  Age: 51 Year
  Sex: Male

DRUGS (1)
  1. TYGACIL [Suspect]
     Dosage: 50MG 1X PER 12 HR INTRAVENOUS
     Route: 042

REACTIONS (3)
  - HEADACHE [None]
  - PANCREATITIS [None]
  - THERAPY NON-RESPONDER [None]
